FAERS Safety Report 10598264 (Version 2)
Quarter: 2014Q4

REPORT INFORMATION
  Report Type: Spontaneous
  Country: BR (occurrence: BR)
  Receive Date: 20141121
  Receipt Date: 20141202
  Transmission Date: 20150529
  Serious: Yes (Death, Hospitalization)
  Sender: FDA-Public Use
  Company Number: BR-PFIZER INC-2014316896

PATIENT
  Age: 82 Year
  Sex: Male

DRUGS (1)
  1. FIBRASE [Suspect]
     Active Substance: CHLORAMPHENICOL
     Indication: PROMOTION OF WOUND HEALING
     Dosage: 1 APPLICATION, 2X/DAY; USED ABOUT 10-12 TUBES
     Route: 061

REACTIONS (4)
  - Femur fracture [Unknown]
  - Cardio-respiratory arrest [Fatal]
  - Nosocomial infection [Not Recovered/Not Resolved]
  - Fall [Unknown]

NARRATIVE: CASE EVENT DATE: 2008
